FAERS Safety Report 14228941 (Version 1)
Quarter: 2017Q4

REPORT INFORMATION
  Report Type: Spontaneous
  Country: US (occurrence: None)
  Receive Date: 20171124
  Receipt Date: 20171124
  Transmission Date: 20180321
  Serious: No
  Sender: FDA-Public Use
  Company Number: None

PATIENT
  Age: 35 Year
  Sex: Female

DRUGS (1)
  1. HUMIRA [Suspect]
     Active Substance: ADALIMUMAB
     Indication: PSORIASIS
     Route: 058
     Dates: start: 20171016

REACTIONS (5)
  - Neuralgia [None]
  - Migraine [None]
  - Pain in extremity [None]
  - Injection site pain [None]
  - Chills [None]

NARRATIVE: CASE EVENT DATE: 20171016
